FAERS Safety Report 18353741 (Version 6)
Quarter: 2021Q4

REPORT INFORMATION
  Report Type: Report from Study
  Country: US (occurrence: US)
  Receive Date: 20201006
  Receipt Date: 20211029
  Transmission Date: 20220303
  Serious: Yes (Hospitalization)
  Sender: FDA-Public Use
  Company Number: US-ROCHE-2687648

PATIENT
  Age: 61 Year
  Sex: Female
  Weight: 136.98 kg

DRUGS (45)
  1. ATEZOLIZUMAB [Suspect]
     Active Substance: ATEZOLIZUMAB
     Indication: Ovarian cancer
     Dosage: DOSE LAST STUDY DRUG ATEZOLIZUMAB ADMINISTERED PRIOR ADVERSE EVENT AND SERIOUS ADVERSE EVENT WAS 840
     Route: 042
     Dates: start: 20200914
  2. COBIMETINIB [Suspect]
     Active Substance: COBIMETINIB
     Indication: Ovarian cancer
     Dosage: DOSE LAST STUDY DRUG COBIMETINIB ADMINISTERED PRIOR ADVERSE EVENT AND SERIOUS ADVERSE EVENT WAS 60 M
     Route: 048
  3. NIRAPARIB [Suspect]
     Active Substance: NIRAPARIB
     Indication: Ovarian cancer
     Dosage: DOSE LAST STUDY DRUG NIRAPARIB ADMINISTERED PRIOR ADVERSE EVENT AND SERIOUS ADVERSE EVENT WAS 200 MG
     Route: 048
  4. GABAPENTIN [Concomitant]
     Active Substance: GABAPENTIN
     Indication: Neuropathy peripheral
     Dates: start: 201804
  5. LOSARTAN [Concomitant]
     Active Substance: LOSARTAN
     Indication: Hypertension
     Dates: start: 2019, end: 20200915
  6. CHLORTHALIDONE [Concomitant]
     Active Substance: CHLORTHALIDONE
     Indication: Hypertension
     Dates: start: 2019
  7. METOPROLOL [Concomitant]
     Active Substance: METOPROLOL
     Indication: Hypertension
     Dates: start: 2010
  8. LISINOPRIL [Concomitant]
     Active Substance: LISINOPRIL
     Indication: Hypertension
     Dates: start: 2018
  9. POTASSIUM [Concomitant]
     Active Substance: POTASSIUM
     Dates: start: 2010
  10. GEMFIBROZIL [Concomitant]
     Active Substance: GEMFIBROZIL
     Indication: Hypercholesterolaemia
     Dates: start: 20200801
  11. HERBALS\TURMERIC [Concomitant]
     Active Substance: HERBALS\TURMERIC
     Indication: Nutritional supplementation
     Dates: start: 201804
  12. OMEGA-3 FATTY ACIDS [Concomitant]
     Active Substance: OMEGA-3 FATTY ACIDS
     Indication: Nutritional supplementation
     Dates: start: 201804
  13. BIOTIN [Concomitant]
     Active Substance: BIOTIN
     Indication: Nutritional supplementation
     Dates: start: 20200701
  14. MAGNESIUM [Concomitant]
     Active Substance: MAGNESIUM
     Indication: Nutritional supplementation
     Dates: start: 202005
  15. CYCLOBENZAPRINE [Concomitant]
     Active Substance: CYCLOBENZAPRINE
     Indication: Back pain
     Dates: start: 2005
  16. ACETAMINOPHEN\HYDROCODONE [Concomitant]
     Active Substance: ACETAMINOPHEN\HYDROCODONE
     Indication: Back pain
     Dates: start: 2010
  17. HYDROCODONE BITARTRATE [Concomitant]
     Active Substance: HYDROCODONE BITARTRATE
     Indication: Back pain
     Dates: start: 2017
  18. DICLOFENAC [Concomitant]
     Active Substance: DICLOFENAC
     Indication: Arthralgia
     Route: 061
     Dates: start: 2018
  19. ACTIVATED CHARCOAL\SILVER SULFATE [Concomitant]
     Active Substance: ACTIVATED CHARCOAL\SILVER SULFATE
     Dates: start: 201805
  20. LOPERAMIDE [Concomitant]
     Active Substance: LOPERAMIDE
     Indication: Diarrhoea
     Dates: start: 20200915, end: 20200916
  21. LOPERAMIDE [Concomitant]
     Active Substance: LOPERAMIDE
     Dates: start: 20200929, end: 20201002
  22. HYDROCORTISONE [Concomitant]
     Active Substance: HYDROCORTISONE
     Indication: Dry skin
     Dates: start: 2018
  23. ATROPINE\DIPHENOXYLATE [Concomitant]
     Active Substance: ATROPINE\DIPHENOXYLATE
     Indication: Diarrhoea
     Dates: start: 20200917, end: 20201028
  24. DEXAMETHASONE [Concomitant]
     Active Substance: DEXAMETHASONE
     Indication: Stomatitis
     Route: 048
     Dates: start: 20200928, end: 20200928
  25. DEXAMETHASONE [Concomitant]
     Active Substance: DEXAMETHASONE
     Indication: Pain of skin
     Dates: start: 20201005, end: 20201019
  26. DEXAMETHASONE [Concomitant]
     Active Substance: DEXAMETHASONE
     Indication: Back pain
  27. DEXAMETHASONE [Concomitant]
     Active Substance: DEXAMETHASONE
     Indication: Abdominal pain
  28. FLUCONAZOLE [Concomitant]
     Active Substance: FLUCONAZOLE
     Indication: Skin infection
     Dates: start: 20201001, end: 20201003
  29. PIPERACILLIN AND TAZOBACTAM [Concomitant]
     Active Substance: PIPERACILLIN SODIUM\TAZOBACTAM SODIUM
     Indication: Cellulitis
     Route: 042
     Dates: start: 20200929, end: 20201004
  30. MAGNESIUM SULFATE [Concomitant]
     Active Substance: MAGNESIUM SULFATE
     Indication: Prophylaxis
     Dates: start: 20201003, end: 20201004
  31. ACETAMINOPHEN [Concomitant]
     Active Substance: ACETAMINOPHEN
     Indication: Abdominal pain
     Dates: start: 20200930, end: 20200930
  32. MORPHINE SULFATE [Concomitant]
     Active Substance: MORPHINE SULFATE
     Indication: Abdominal pain
     Dates: start: 20200929, end: 20201001
  33. AMITRIPTYLINE [Concomitant]
     Active Substance: AMITRIPTYLINE
     Indication: Back pain
     Dates: start: 20200929
  34. ASPIRIN [Concomitant]
     Active Substance: ASPIRIN
     Indication: Cardiovascular event prophylaxis
     Dates: start: 20200929, end: 20201003
  35. ZOLPIDEM TARTRATE [Concomitant]
     Active Substance: ZOLPIDEM TARTRATE
     Indication: Insomnia
     Dates: start: 20200928, end: 20201003
  36. ZINC SULFATE [Concomitant]
     Active Substance: ZINC SULFATE
     Indication: Cellulitis
     Route: 048
     Dates: start: 20201003, end: 20201003
  37. POTASSIUM BICARBONATE/CITRIC ACID [Concomitant]
     Indication: Prophylaxis
     Dates: start: 20201003, end: 20201004
  38. SODIUM CHLORIDE [Concomitant]
     Active Substance: SODIUM CHLORIDE
     Indication: Prophylaxis against dehydration
     Dates: start: 20200929, end: 20201004
  39. ACIDOPHILUS [Concomitant]
     Active Substance: LACTOBACILLUS ACIDOPHILUS
     Indication: Diarrhoea
     Dates: start: 20200929, end: 20201004
  40. NYSTATIN [Concomitant]
     Active Substance: NYSTATIN
     Indication: Cellulitis
     Dosage: 1 OTHER
     Route: 061
     Dates: start: 20200929, end: 20201026
  41. DOXYCYCLINE HYCLATE [Concomitant]
     Active Substance: DOXYCYCLINE HYCLATE
     Indication: Infection prophylaxis
     Dates: start: 20201005, end: 20201011
  42. FLUCONAZOLE [Concomitant]
     Active Substance: FLUCONAZOLE
     Indication: Cellulitis
     Route: 048
     Dates: start: 20201005, end: 20201008
  43. LEVOTHYROXINE [Concomitant]
     Active Substance: LEVOTHYROXINE
     Indication: Hypothyroidism
     Dates: start: 2011
  44. DEXAMETHASONE [Concomitant]
     Active Substance: DEXAMETHASONE
     Indication: Prophylaxis
     Dates: start: 20201005, end: 20201019
  45. ATROPINE\DIPHENOXYLATE [Concomitant]
     Active Substance: ATROPINE\DIPHENOXYLATE
     Indication: Diarrhoea
     Dates: start: 20200917, end: 20201028

REACTIONS (1)
  - Encephalopathy [Recovered/Resolved]

NARRATIVE: CASE EVENT DATE: 20200928
